FAERS Safety Report 6252116-5 (Version None)
Quarter: 2009Q2

REPORT INFORMATION
  Report Type: 
  Country: None (occurrence: None)
  Receive Date: 20090630
  Receipt Date: 20061003
  Transmission Date: 20091009
  Serious: Yes (Hospitalization)
  Sender: FDA-Public Use
  Company Number: US-ROCHE-639071

PATIENT
  Sex: Female

DRUGS (6)
  1. ENFUVIRTIDE [Suspect]
     Indication: HIV INFECTION
     Route: 065
     Dates: start: 20040802, end: 20070613
  2. EPIVIR [Concomitant]
     Dosage: FREQ: QD
     Dates: start: 20040802, end: 20070613
  3. LEXIVA [Concomitant]
     Dosage: FREQ: QD
     Dates: start: 20040802, end: 20070613
  4. NORVIR [Concomitant]
     Dosage: FREQ: QD
     Dates: start: 20040802, end: 20070613
  5. VIREAD [Concomitant]
     Dosage: FREQ: QD
     Dates: start: 20040802, end: 20080814
  6. ZITHROMAX [Concomitant]
     Dosage: FREQ: QD
     Dates: start: 20060201, end: 20060205

REACTIONS (2)
  - ABDOMINAL PAIN LOWER [None]
  - RECTAL HAEMORRHAGE [None]
